FAERS Safety Report 4388913-0 (Version None)
Quarter: 2004Q2

REPORT INFORMATION
  Report Type: 
  Country: None (occurrence: None)
  Receive Date: 20040628
  Receipt Date: 20040603
  Transmission Date: 20050107
  Serious: Yes (Other)
  Sender: FDA-Public Use
  Company Number: 001#1#2004-00117

PATIENT
  Age: 69 Year
  Sex: Male

DRUGS (10)
  1. ALPROSTADIL [Suspect]
     Indication: PERIPHERAL VASCULAR DISORDER
     Dosage: 60 MG PER INFUSION, 3X/WEEK INTRAVENOUS
     Route: 042
     Dates: start: 20040202, end: 20040303
  2. NACL-TRAEGERLOESUNG (SODIUM CHLORIDE) [Suspect]
     Indication: PERIPHERAL VASCULAR DISORDER
     Dosage: 50 ML PER INFUSION, 3X/WEEK INTRAVENOUS
     Route: 042
     Dates: start: 20040202, end: 20040303
  3. VALSARTAN (VALSARTAN) [Concomitant]
  4. MOLSIDOMINE (MOLSIDOMINE) [Concomitant]
  5. ALFACALCIDOL (ALFACALCIDOL) [Concomitant]
  6. VALORON N (NALOXONE HYDROCHLORIDE, TILIDINE HYDROCHLORIDE) [Concomitant]
  7. LACTULOSE [Concomitant]
  8. DREISAVIT N (AMMONIUM PERSULFATE, ASCORBIC ACID, BIOTIN, CALCIUM PANTO [Concomitant]
  9. NITRATES () [Concomitant]
  10. CALCIUM ACETATE (CALCIUM ACETATE) [Concomitant]

REACTIONS (5)
  - CYANOSIS [None]
  - DIALYSIS [None]
  - DYSPNOEA [None]
  - PCO2 INCREASED [None]
  - PO2 DECREASED [None]
